FAERS Safety Report 5679000-X (Version None)
Quarter: 2008Q1

REPORT INFORMATION
  Report Type: 
  Country: None (occurrence: None)
  Receive Date: 20080325
  Receipt Date: 20080324
  Transmission Date: 20080703
  Serious: Yes (Other)
  Sender: FDA-Public Use
  Company Number: A0716972A

PATIENT
  Age: 81 Year
  Sex: Male

DRUGS (1)
  1. DEBROX [Suspect]
     Indication: DRUG USE FOR UNKNOWN INDICATION
     Route: 001

REACTIONS (3)
  - AURICULAR SWELLING [None]
  - DEAFNESS [None]
  - DRUG INEFFECTIVE [None]
